FAERS Safety Report 7206535-0 (Version None)
Quarter: 2011Q1

REPORT INFORMATION
  Report Type: 
  Country: None (occurrence: None)
  Receive Date: 20110103
  Receipt Date: 20101221
  Transmission Date: 20110831
  Serious: Yes (Other)
  Sender: FDA-Public Use
  Company Number: PHHY2010US83481

PATIENT
  Sex: Female

DRUGS (1)
  1. EXJADE [Suspect]
     Indication: IRON METABOLISM DISORDER
     Dosage: 1500 MG DAILY
     Route: 048

REACTIONS (6)
  - ASTHENIA [None]
  - LOSS OF CONSCIOUSNESS [None]
  - DIARRHOEA [None]
  - CONDITION AGGRAVATED [None]
  - NAUSEA [None]
  - FATIGUE [None]
